FAERS Safety Report 18706153 (Version 2)
Quarter: 2021Q1

REPORT INFORMATION
  Report Type: Spontaneous
  Country: IL (occurrence: IL)
  Receive Date: 20210106
  Receipt Date: 20210203
  Transmission Date: 20210419
  Serious: Yes (Other)
  Sender: FDA-Public Use
  Company Number: NVSC2020IL347159

PATIENT
  Sex: Female

DRUGS (2)
  1. FEMARA [Suspect]
     Active Substance: LETROZOLE
     Indication: PIK3CA-ACTIVATED MUTATION
  2. FEMARA [Suspect]
     Active Substance: LETROZOLE
     Indication: TRIPLE NEGATIVE BREAST CANCER
     Dosage: UNK
     Route: 065

REACTIONS (3)
  - Triple negative breast cancer [Unknown]
  - Central nervous system lesion [Unknown]
  - Malignant neoplasm progression [Unknown]
